FAERS Safety Report 4543352-4 (Version None)
Quarter: 2004Q4

REPORT INFORMATION
  Report Type: 
  Country: None (occurrence: None)
  Receive Date: 20041223
  Receipt Date: 20040915
  Transmission Date: 20050328
  Serious: No
  Sender: FDA-Public Use
  Company Number: US-JNJFOC-20040905678

PATIENT
  Age: 40 Year
  Sex: Female
  Weight: 53.5244 kg

DRUGS (3)
  1. ORTHO EVRA [Suspect]
     Indication: CONTRACEPTION
     Dosage: 1 DOSE (S), 3 IN 4 WEEK, TANSDERMAL
     Route: 062
     Dates: start: 20040905
  2. HUMULIN N [Concomitant]
  3. HULULIN-R INSULIN [Concomitant]

REACTIONS (2)
  - HEADACHE [None]
  - NAUSEA [None]
